FAERS Safety Report 19755052 (Version 1)
Quarter: 2021Q3

REPORT INFORMATION
  Report Type: Spontaneous
  Country: NL (occurrence: NL)
  Receive Date: 20210827
  Receipt Date: 20210827
  Transmission Date: 20211014
  Serious: Yes (Hospitalization)
  Sender: FDA-Public Use
  Company Number: NL-TEVA-2021-NL-1945314

PATIENT
  Age: 51 Year
  Sex: Female

DRUGS (3)
  1. PALBOCICLIB [Suspect]
     Active Substance: PALBOCICLIB
     Dosage: 125 MG:SUBTANCE NAME : PALBOCICLIB ,
     Dates: start: 20180928
  2. LETROZOLE. [Suspect]
     Active Substance: LETROZOLE
     Dosage: 2.5 MG:SUBTANCE NAME : LETROZOLE ,
  3. LEUPRORELINE [Suspect]
     Active Substance: LEUPROLIDE
     Dosage: 11.25 MG:SUBTANCE NAME : LEUPRORELIN ,

REACTIONS (2)
  - Arthralgia [Unknown]
  - Cellulitis [Unknown]

NARRATIVE: CASE EVENT DATE: 20190331
